FAERS Safety Report 7914717-5 (Version None)
Quarter: 2011Q4

REPORT INFORMATION
  Report Type: 
  Country: None (occurrence: None)
  Receive Date: 20111115
  Receipt Date: 20111109
  Transmission Date: 20120403
  Serious: Yes (Hospitalization)
  Sender: FDA-Public Use
  Company Number: PHHO2011FR018872

PATIENT
  Sex: Male

DRUGS (12)
  1. PROPRANOLOL [Concomitant]
  2. MOVIPREP [Concomitant]
  3. MORPHINE SULFATE [Concomitant]
  4. ASPIRIN [Concomitant]
  5. OMEPRAZOLE [Concomitant]
  6. RADIOTHERAPY [Suspect]
     Indication: NON-SMALL CELL LUNG CANCER
  7. MICONAZOLE [Concomitant]
  8. VESICARE [Concomitant]
  9. GAVISCON [Concomitant]
  10. EVEROLIMUS [Suspect]
     Indication: NON-SMALL CELL LUNG CANCER
     Dosage: 5 MG, DAILY
     Route: 048
     Dates: start: 20111004
  11. MORPHINE SULFATE [Concomitant]
  12. LANSOYL [Concomitant]

REACTIONS (1)
  - OESOPHAGITIS [None]
